FAERS Safety Report 18980934 (Version 1)
Quarter: 2021Q1

REPORT INFORMATION
  Report Type: Spontaneous
  Country: US (occurrence: US)
  Receive Date: 20210305
  Receipt Date: 20210305
  Transmission Date: 20210420
  Serious: Yes (Hospitalization)
  Sender: FDA-Public Use
  Company Number: None

PATIENT
  Sex: Female

DRUGS (9)
  1. ATORVASTATIN [Concomitant]
     Active Substance: ATORVASTATIN
  2. TADALAFIL 20MG TAB [Suspect]
     Active Substance: TADALAFIL
     Indication: PULMONARY HYPERTENSION
     Route: 048
     Dates: start: 20201017
  3. FUROSEMIDE. [Concomitant]
     Active Substance: FUROSEMIDE
  4. SYNTHROID [Concomitant]
     Active Substance: LEVOTHYROXINE SODIUM
  5. AMBRISENTAN 5MG TAB [Suspect]
     Active Substance: AMBRISENTAN
     Indication: PULMONARY HYPERTENSION
     Route: 048
     Dates: start: 20201003
  6. NADOLOL. [Concomitant]
     Active Substance: NADOLOL
  7. SPIRONOLACT [Concomitant]
     Active Substance: SPIRONOLACTONE
  8. HUMALOG MIX [Concomitant]
     Active Substance: INSULIN LISPRO
  9. PANTOPRAZOLE [Concomitant]
     Active Substance: PANTOPRAZOLE

REACTIONS (4)
  - Insomnia [None]
  - Weight increased [None]
  - Decreased appetite [None]
  - Hepatic cancer [None]
